FAERS Safety Report 5221657-1 (Version None)
Quarter: 2007Q1

REPORT INFORMATION
  Report Type: 
  Country: None (occurrence: None)
  Receive Date: 20070129
  Receipt Date: 20070123
  Transmission Date: 20070707
  Serious: Yes (Life-Threatening)
  Sender: FDA-Public Use
  Company Number: CN-BRISTOL-MYERS SQUIBB COMPANY-13657200

PATIENT
  Age: 83 Year
  Sex: Male

DRUGS (1)
  1. AZACTAM [Suspect]

REACTIONS (2)
  - APLASTIC ANAEMIA [None]
  - DERMATITIS EXFOLIATIVE [None]
